FAERS Safety Report 17282768 (Version 2)
Quarter: 2020Q1

REPORT INFORMATION
  Report Type: Spontaneous
  Country: DE (occurrence: DE)
  Receive Date: 20200117
  Receipt Date: 20200129
  Transmission Date: 20200409
  Serious: Yes (Other)
  Sender: FDA-Public Use
  Company Number: NVSC2019DE072383

PATIENT
  Age: 55 Year
  Sex: Female

DRUGS (2)
  1. DOCETAXEL. [Suspect]
     Active Substance: DOCETAXEL
     Indication: PRODUCT USED FOR UNKNOWN INDICATION
     Dosage: UNK
     Route: 065
     Dates: start: 20190326, end: 20190507
  2. VARGATEF [Suspect]
     Active Substance: NINTEDANIB
     Indication: PRODUCT USED FOR UNKNOWN INDICATION
     Dosage: UNK
     Route: 065
     Dates: start: 20190326, end: 20191011

REACTIONS (2)
  - Malignant neoplasm progression [Unknown]
  - Pneumonitis [Unknown]

NARRATIVE: CASE EVENT DATE: 20191011
